FAERS Safety Report 12742960 (Version 1)
Quarter: 2016Q3

REPORT INFORMATION
  Report Type: Spontaneous
  Country: US (occurrence: US)
  Receive Date: 20160914
  Receipt Date: 20160914
  Transmission Date: 20161109
  Serious: Yes (Death)
  Sender: FDA-Public Use
  Company Number: None

PATIENT
  Age: 24 Year
  Sex: Male
  Weight: 80.1 kg

DRUGS (4)
  1. MARIJUANA [Suspect]
     Active Substance: CANNABIS SATIVA SUBSP. INDICA TOP
  2. THE NODDING TURTLE EUROPEAN SPECIAL RESERVE PREMIUM POPPY SEEDS [Concomitant]
  3. MORPHINE [Suspect]
     Active Substance: MORPHINE
  4. PREMIUM POPPY SEEDS [Suspect]
     Active Substance: POPPY SEED

REACTIONS (1)
  - Drug abuse [None]

NARRATIVE: CASE EVENT DATE: 20160223
